FAERS Safety Report 24140428 (Version 1)
Quarter: 2024Q3

REPORT INFORMATION
  Report Type: Spontaneous
  Country: FR (occurrence: FR)
  Receive Date: 20240726
  Receipt Date: 20240726
  Transmission Date: 20241016
  Serious: Yes (Hospitalization, Other)
  Sender: AUROBINDO
  Company Number: FR-AFSSAPS-RN2024000778

PATIENT
  Age: 38 Year
  Sex: Female

DRUGS (4)
  1. OLANZAPINE [Suspect]
     Active Substance: OLANZAPINE
     Indication: Product used for unknown indication
     Dosage: 3 DOSAGE FORM (10 MILLIGRAM)
     Route: 048
     Dates: start: 20240620, end: 20240620
  2. TEGRETOL [Suspect]
     Active Substance: CARBAMAZEPINE
     Indication: Medication error
     Dosage: 1 DOSAGE FORM (1/2)
     Route: 048
     Dates: start: 20240620, end: 20240620
  3. TROPATEPINE HYDROCHLORIDE [Suspect]
     Active Substance: TROPATEPINE HYDROCHLORIDE
     Indication: Medication error
     Dosage: 1 DOSAGE FORM, ONCE A DAY
     Route: 048
     Dates: start: 20240620, end: 20240620
  4. TRANXENE [Suspect]
     Active Substance: CLORAZEPATE DIPOTASSIUM
     Indication: Medication error
     Dosage: 1 DOSAGE FORM
     Route: 048
     Dates: start: 20240620, end: 20240620

REACTIONS (2)
  - Hypotension [Recovered/Resolved]
  - Medication error [Recovered/Resolved]

NARRATIVE: CASE EVENT DATE: 20240620
